FAERS Safety Report 11079079 (Version 1)
Quarter: 2015Q2

REPORT INFORMATION
  Report Type: Spontaneous
  Country: US (occurrence: None)
  Receive Date: 20150429
  Receipt Date: 20150429
  Transmission Date: 20150821
  Serious: Yes (Hospitalization)
  Sender: FDA-Public Use
  Company Number: None

PATIENT
  Age: 59 Year
  Sex: Female
  Weight: 60.5 kg

DRUGS (18)
  1. LEVOFLOXACIN. [Concomitant]
     Active Substance: LEVOFLOXACIN
  2. LOPERAMIDE [Concomitant]
     Active Substance: LOPERAMIDE
  3. LENALIDOMIDE 5 MG [Suspect]
     Active Substance: LENALIDOMIDE
     Indication: PLASMA CELL MYELOMA
     Dosage: 25 MG, DAYS 1-14, ORAL
     Route: 048
     Dates: start: 20150420, end: 20150425
  4. MORPHINE [Concomitant]
     Active Substance: MORPHINE
  5. DEXAMETHASONE. [Concomitant]
     Active Substance: DEXAMETHASONE
  6. TIOTROPIUM [Concomitant]
     Active Substance: TIOTROPIUM
  7. ACETAMINOPHEN. [Concomitant]
     Active Substance: ACETAMINOPHEN
  8. DOCUSATE SODIUM. [Concomitant]
     Active Substance: DOCUSATE SODIUM
  9. LORAZEPAM. [Concomitant]
     Active Substance: LORAZEPAM
  10. TRIAMCINOLONE ACETONIDE. [Concomitant]
     Active Substance: TRIAMCINOLONE ACETONIDE
  11. FEXOFENADINE [Concomitant]
     Active Substance: FEXOFENADINE\FEXOFENADINE HYDROCHLORIDE
  12. OMEPRAZOLE. [Concomitant]
     Active Substance: OMEPRAZOLE
  13. PROCHLORPERAZINE. [Concomitant]
     Active Substance: PROCHLORPERAZINE
  14. POLYETHYLENE GLYCOL [Concomitant]
     Active Substance: POLYETHYLENE GLYCOLS
  15. ACYCLOVIR. [Concomitant]
     Active Substance: ACYCLOVIR
  16. ALBUTEROL. [Concomitant]
     Active Substance: ALBUTEROL
  17. OSELTAMIVIR [Concomitant]
     Active Substance: OSELTAMIVIR
  18. VELCADE [Suspect]
     Active Substance: BORTEZOMIB
     Indication: PLASMA CELL MYELOMA
     Dosage: 1.3 MG/M2, DAYS 1, 4, 8, 11, INTRAVENOUS
     Route: 042
     Dates: start: 20150420, end: 20150423

REACTIONS (2)
  - Hypoxia [None]
  - Influenza [None]

NARRATIVE: CASE EVENT DATE: 20150428
